APPROVED DRUG PRODUCT: ADRENALIN
Active Ingredient: EPINEPHRINE
Strength: 2MG/250ML (8MCG/ML)
Dosage Form/Route: SOLUTION;INTRAVENOUS
Application: N215875 | Product #001
Applicant: PH HEALTH LTD
Approved: Apr 21, 2023 | RLD: Yes | RS: Yes | Type: RX

PATENTS:
Patent 11083698 | Expires: Mar 21, 2039
Patent 10653646 | Expires: Mar 21, 2039
Patent 11207280 | Expires: Mar 21, 2039
Patent 12133837 | Expires: Mar 21, 2039